FAERS Safety Report 4609673-1 (Version None)
Quarter: 2005Q1

REPORT INFORMATION
  Report Type: 
  Country: None (occurrence: None)
  Receive Date: 20050314
  Receipt Date: 20050228
  Transmission Date: 20050727
  Serious: Yes (Hospitalization)
  Sender: FDA-Public Use
  Company Number: 2005CG00269

PATIENT
  Age: 51 Year
  Sex: Female
  Weight: 69 kg

DRUGS (5)
  1. ZOMIG [Suspect]
     Indication: MIGRAINE
     Dates: start: 20041014, end: 20041022
  2. DUOVA [Suspect]
     Dosage: 1 DF QD PO
     Route: 048
     Dates: start: 20040917, end: 20041013
  3. DI-ANTALVIC [Suspect]
     Dates: start: 20041014, end: 20041022
  4. ESBERIVEN [Suspect]
     Dosage: 2 DF QD PO
     Route: 048
     Dates: start: 19970101, end: 20041022
  5. KETOPROFEN [Suspect]
     Dosage: 50 MG TID PO
     Route: 048
     Dates: start: 20040823, end: 20040830

REACTIONS (4)
  - APHASIA [None]
  - CAROTID ARTERY ANEURYSM [None]
  - CAROTID ARTERY DISSECTION [None]
  - CEREBROVASCULAR ACCIDENT [None]
